FAERS Safety Report 11927398 (Version 1)
Quarter: 2016Q1

REPORT INFORMATION
  Report Type: Spontaneous
  Country: JP (occurrence: JP)
  Receive Date: 20160119
  Receipt Date: 20160119
  Transmission Date: 20160526
  Serious: Yes (Other)
  Sender: FDA-Public Use
  Company Number: JP-WARNER CHILCOTT, LLC-1046602

PATIENT
  Sex: Female

DRUGS (7)
  1. TAKEPRON [Concomitant]
     Active Substance: LANSOPRAZOLE
  2. LANSOPRAZOLE. [Concomitant]
     Active Substance: LANSOPRAZOLE
  3. ACTONEL [Suspect]
     Active Substance: RISEDRONATE SODIUM
     Indication: OSTEOPOROSIS
     Route: 048
     Dates: start: 20140324, end: 20150516
  4. ALFACALCIDOL [Concomitant]
     Active Substance: ALFACALCIDOL
  5. BENET [Suspect]
     Active Substance: RISEDRONATE SODIUM
     Route: 048
     Dates: start: 20090220, end: 20140324
  6. BENET [Suspect]
     Active Substance: RISEDRONATE SODIUM
     Route: 048
     Dates: start: 200609, end: 20090220
  7. VITAMIN D AND ANALOGUES [Concomitant]
     Active Substance: CHOLECALCIFEROL

REACTIONS (4)
  - Atypical femur fracture [None]
  - Pain in extremity [Not Recovered/Not Resolved]
  - Weight bearing difficulty [None]
  - Tenderness [None]
